FAERS Safety Report 14902247 (Version 1)
Quarter: 2018Q2

REPORT INFORMATION
  Report Type: Spontaneous
  Country: PT (occurrence: PT)
  Receive Date: 20180516
  Receipt Date: 20180516
  Transmission Date: 20180711
  Serious: Yes (Disabling, Other)
  Sender: FDA-Public Use
  Company Number: PT-TEVA-2018-PT-892697

PATIENT
  Age: 70 Year
  Weight: 92 kg

DRUGS (1)
  1. CIPROFLOXACIN. [Suspect]
     Active Substance: CIPROFLOXACIN
     Indication: PRODUCT USED FOR UNKNOWN INDICATION
     Dosage: 500 MILLIGRAM DAILY; COMPRESSED
     Route: 048
     Dates: start: 20180310, end: 20180312

REACTIONS (4)
  - Anxiety [Recovering/Resolving]
  - Tremor [Recovering/Resolving]
  - Sleep terror [Recovering/Resolving]
  - Hyperhidrosis [Recovering/Resolving]

NARRATIVE: CASE EVENT DATE: 20180310
